FAERS Safety Report 18708060 (Version 1)
Quarter: 2021Q1

REPORT INFORMATION
  Report Type: Report from Study
  Country: CA (occurrence: CA)
  Receive Date: 20210106
  Receipt Date: 20210106
  Transmission Date: 20210419
  Serious: Yes (Hospitalization)
  Sender: FDA-Public Use
  Company Number: CA-BAYER-2020-237452

PATIENT
  Sex: Male

DRUGS (1)
  1. STIVARGA [Suspect]
     Active Substance: REGORAFENIB
     Indication: ADENOCARCINOMA OF COLON
     Dosage: UNK

REACTIONS (5)
  - Acute hepatic failure [Unknown]
  - Off label use [None]
  - Product use in unapproved indication [None]
  - Lung disorder [Unknown]
  - Acute kidney injury [Unknown]
